FAERS Safety Report 19287471 (Version 2)
Quarter: 2021Q2

REPORT INFORMATION
  Report Type: Spontaneous
  Country: IT (occurrence: IT)
  Receive Date: 20210522
  Receipt Date: 20210531
  Transmission Date: 20210717
  Serious: Yes (Hospitalization, Other)
  Sender: FDA-Public Use
  Company Number: IT-AUROBINDO-AUR-APL-2021-020790

PATIENT
  Age: 71 Year
  Sex: Male

DRUGS (1)
  1. KETOROLAC [Suspect]
     Active Substance: KETOROLAC TROMETHAMINE
     Indication: PAIN
     Dosage: 30 MILLIGRAM, ONCE A DAY
     Route: 030
     Dates: start: 20210430

REACTIONS (2)
  - Rectal haemorrhage [Unknown]
  - Vertigo [Unknown]

NARRATIVE: CASE EVENT DATE: 20210430
